FAERS Safety Report 25390720 (Version 1)
Quarter: 2025Q2

REPORT INFORMATION
  Report Type: Spontaneous
  Country: GB (occurrence: GB)
  Receive Date: 20250603
  Receipt Date: 20250603
  Transmission Date: 20250716
  Serious: Yes (Disabling, Other)
  Sender: ORGANON
  Company Number: None

PATIENT
  Sex: Female

DRUGS (3)
  1. ALENDRONATE SODIUM [Suspect]
     Active Substance: ALENDRONATE SODIUM
     Indication: Osteoporosis
     Dosage: 70MG ONCE A WEEK
     Dates: start: 20250218, end: 20250526
  2. METHENAMINE HIPPURATE [Concomitant]
     Active Substance: METHENAMINE HIPPURATE
     Indication: Urinary tract infection
     Dates: start: 20240101
  3. SOLIFENACIN [Concomitant]
     Active Substance: SOLIFENACIN
     Indication: Hypertonic bladder
     Dates: start: 20190901

REACTIONS (1)
  - Carpal tunnel syndrome [Not Recovered/Not Resolved]

NARRATIVE: CASE EVENT DATE: 20250501
